FAERS Safety Report 6945810-1 (Version None)
Quarter: 2010Q3

REPORT INFORMATION
  Report Type: 
  Country: None (occurrence: None)
  Receive Date: 20100824
  Receipt Date: 20100810
  Transmission Date: 20110219
  Serious: Yes (Hospitalization)
  Sender: FDA-Public Use
  Company Number: 2000-09-1129

PATIENT
  Age: 54 Year
  Sex: Female

DRUGS (4)
  1. CELESTONE [Suspect]
     Indication: ILL-DEFINED DISORDER
     Dosage: PO
     Route: 048
     Dates: start: 20000616, end: 20000618
  2. VISCERALGINE (TIEMONIUM MESILATE) [Suspect]
     Indication: ILL-DEFINED DISORDER
     Dosage: 50 MG;QD;PO
     Route: 048
     Dates: start: 20000616, end: 20000618
  3. FELDENE [Suspect]
     Indication: ILL-DEFINED DISORDER
     Dosage: PO
     Route: 048
  4. SPASFON (SPASFON /00765801/) [Suspect]
     Indication: ILL-DEFINED DISORDER
     Dosage: PO
     Route: 048
     Dates: start: 20000616, end: 20000618

REACTIONS (6)
  - EYELID OEDEMA [None]
  - HYPOTENSION [None]
  - LIP OEDEMA [None]
  - PHARYNGEAL OEDEMA [None]
  - RESPIRATORY DISORDER [None]
  - URTICARIA [None]
